FAERS Safety Report 10457189 (Version 1)
Quarter: 2014Q3

REPORT INFORMATION
  Report Type: Spontaneous
  Country: FR (occurrence: FR)
  Receive Date: 20140916
  Receipt Date: 20140916
  Transmission Date: 20150326
  Serious: Yes (Life-Threatening, Hospitalization)
  Sender: FDA-Public Use
  Company Number: FR-PFIZER INC-2014251766

PATIENT
  Age: 76 Year
  Sex: Female

DRUGS (12)
  1. KEPPRA [Suspect]
     Active Substance: LEVETIRACETAM
     Indication: CONVULSION PROPHYLAXIS
     Dosage: UNK
     Route: 048
     Dates: start: 20140611, end: 20140731
  2. TAVANIC [Concomitant]
     Active Substance: LEVOFLOXACIN
     Indication: PNEUMONIA
     Dosage: UNK
     Dates: start: 20140713, end: 20140721
  3. INEXIUM [Suspect]
     Active Substance: ESOMEPRAZOLE
     Indication: HIATUS HERNIA
     Dosage: UNK
     Route: 048
     Dates: start: 20140608, end: 20140731
  4. LOVENOX [Suspect]
     Active Substance: ENOXAPARIN SODIUM
     Dosage: UNK
     Route: 058
     Dates: start: 20140608, end: 20140731
  5. CUBICIN [Concomitant]
     Active Substance: DAPTOMYCIN
     Indication: POSTOPERATIVE WOUND COMPLICATION
     Dosage: UNK
     Route: 041
     Dates: start: 20140704, end: 20140707
  6. TAZOCILLINE [Concomitant]
     Active Substance: PIPERACILLIN SODIUM\TAZOBACTAM SODIUM
     Indication: POSTOPERATIVE WOUND COMPLICATION
     Dosage: UNK
     Route: 041
     Dates: start: 20140704, end: 20140711
  7. SIMVASTATIN. [Suspect]
     Active Substance: SIMVASTATIN
     Dosage: UNK
     Route: 048
     Dates: start: 20140608, end: 20140731
  8. LYRICA [Suspect]
     Active Substance: PREGABALIN
     Dosage: 115 MG, 2X/DAY
     Route: 048
     Dates: start: 20140608, end: 20140731
  9. CIFLOX [Concomitant]
     Active Substance: CIPROFLOXACIN
     Indication: POSTOPERATIVE WOUND COMPLICATION
     Dosage: UNK
     Dates: start: 20140704, end: 20140711
  10. VANCOMYCINE [Suspect]
     Active Substance: VANCOMYCIN
     Indication: POSTOPERATIVE WOUND COMPLICATION
     Dosage: 1 G, 2X/DAY
     Route: 041
     Dates: start: 20140711, end: 20140730
  11. PARACETAMOL [Concomitant]
     Active Substance: ACETAMINOPHEN
     Indication: PAIN
  12. RIFADINE [Suspect]
     Active Substance: RIFAMPIN
     Indication: POSTOPERATIVE WOUND COMPLICATION
     Dosage: 600 MG, 2X/DAY
     Dates: start: 20140717, end: 20140730

REACTIONS (1)
  - Drug reaction with eosinophilia and systemic symptoms [Recovering/Resolving]

NARRATIVE: CASE EVENT DATE: 20140730
